FAERS Safety Report 11258101 (Version 1)
Quarter: 2015Q3

REPORT INFORMATION
  Report Type: Spontaneous
  Country: FR (occurrence: FR)
  Receive Date: 20150710
  Receipt Date: 20150710
  Transmission Date: 20151125
  Serious: Yes (Death, Hospitalization)
  Sender: FDA-Public Use
  Company Number: FR-009507513-1507FRA001149

PATIENT
  Age: 94 Year
  Sex: Female

DRUGS (4)
  1. SINEMET [Suspect]
     Active Substance: CARBIDOPA\LEVODOPA
     Dosage: 1.5 DF, TID
     Route: 048
     Dates: start: 20150622
  2. KARDEGIC [Suspect]
     Active Substance: ASPIRIN LYSINE
     Dosage: 1 DF, QD
     Route: 048
  3. LODOZ [Suspect]
     Active Substance: BISOPROLOL FUMARATE\HYDROCHLOROTHIAZIDE
     Dosage: 1 DF, QD
     Route: 048
  4. MOTILIUM [Suspect]
     Active Substance: DOMPERIDONE
     Route: 048

REACTIONS (5)
  - Acute kidney injury [Fatal]
  - Altered state of consciousness [Fatal]
  - Dyspnoea [Fatal]
  - Atrial fibrillation [Fatal]
  - General physical health deterioration [Fatal]

NARRATIVE: CASE EVENT DATE: 20150623
